FAERS Safety Report 5015808-1 (Version None)
Quarter: 2006Q2

REPORT INFORMATION
  Report Type: 
  Country: None (occurrence: None)
  Receive Date: 20060531
  Receipt Date: 20060531
  Transmission Date: 20061013
  Serious: Yes (Hospitalization)
  Sender: FDA-Public Use
  Company Number: None

PATIENT
  Age: 81 Year
  Sex: Male
  Weight: 92.0802 kg

DRUGS (11)
  1. WARFARIN SODIUM [Suspect]
     Indication: AORTIC VALVE REPLACEMENT
     Dosage: 4 MG DAILY
  2. FINASTERIDE [Concomitant]
  3. FOSINOPRIL SODIUM [Concomitant]
  4. HCTZ-HYDROCHLOROTHIAZIDE [Concomitant]
  5. SIMVASTATIN [Concomitant]
  6. M.V.I. [Concomitant]
  7. GOSERELIN IMPLANT [Concomitant]
  8. DOCUSATE [Concomitant]
  9. METOPROLOL [Concomitant]
  10. UROXATRAL [Concomitant]
  11. RANITIDINE [Concomitant]

REACTIONS (7)
  - ANAEMIA [None]
  - HAEMATURIA [None]
  - INTERNATIONAL NORMALISED RATIO INCREASED [None]
  - RENAL FAILURE ACUTE [None]
  - URINARY BLADDER HAEMORRHAGE [None]
  - URINARY RETENTION [None]
  - URINARY TRACT OBSTRUCTION [None]
